FAERS Safety Report 23433208 (Version 2)
Quarter: 2024Q1

REPORT INFORMATION
  Report Type: Spontaneous
  Country: CA (occurrence: CA)
  Receive Date: 20240123
  Receipt Date: 20240125
  Transmission Date: 20240410
  Serious: Yes (Other)
  Sender: FDA-Public Use
  Company Number: CA-PFIZER INC-202400017085

PATIENT
  Age: 68 Year
  Sex: Male

DRUGS (1)
  1. PAXLOVID [Suspect]
     Active Substance: NIRMATRELVIR\RITONAVIR
     Indication: COVID-19 treatment
     Dosage: UNK
     Dates: start: 20231122, end: 20231126

REACTIONS (8)
  - Lipase increased [Unknown]
  - Oxygen saturation decreased [Unknown]
  - Tachypnoea [Unknown]
  - Respiratory failure [Unknown]
  - Disease recurrence [Unknown]
  - COVID-19 [Unknown]
  - Lymphocyte count decreased [Unknown]
  - Asthma [Unknown]

NARRATIVE: CASE EVENT DATE: 20230101
